FAERS Safety Report 19930171 (Version 1)
Quarter: 2021Q4

REPORT INFORMATION
  Report Type: Spontaneous
  Country: CN (occurrence: CN)
  Receive Date: 20211007
  Receipt Date: 20211007
  Transmission Date: 20220303
  Serious: Yes (Hospitalization)
  Sender: FDA-Public Use
  Company Number: CN-BAXTER-2021BAX024410

PATIENT
  Age: 56 Year
  Sex: Female
  Weight: 50.8 kg

DRUGS (4)
  1. CYCLOPHOSPHAMIDE [Suspect]
     Active Substance: CYCLOPHOSPHAMIDE
     Indication: Breast cancer female
     Dosage: ENDOXAN 0.9 G + 0.9% SODIUM CHLORIDE INJECTION 100 ML; FIRST CHEMOTHERAPY
     Route: 041
     Dates: start: 20210519, end: 20210519
  2. SODIUM CHLORIDE [Suspect]
     Active Substance: SODIUM CHLORIDE
     Indication: Medication dilution
     Dosage: ENDOXAN 0.9 G + 0.9% SODIUM CHLORIDE INJECTION 100 ML; FIRST CHEMOTHERAPY
     Route: 041
     Dates: start: 20210519, end: 20210519
  3. SODIUM CHLORIDE [Suspect]
     Active Substance: SODIUM CHLORIDE
     Dosage: PHARMORUBICIN 130 MG + 0.9% SODIUM CHLORIDE INJECTION 50ML; FIRST CHEMOTHERAPY
     Route: 041
     Dates: start: 20210519, end: 20210519
  4. EPIRUBICIN [Suspect]
     Active Substance: EPIRUBICIN
     Indication: Breast cancer female
     Dosage: PHARMORUBICIN 130 MG + 0.9% SODIUM CHLORIDE INJECTION 50ML; FIRST CHEMOTHERAPY
     Route: 041
     Dates: start: 20210519, end: 20210519

REACTIONS (3)
  - Agranulocytosis [Recovering/Resolving]
  - Pyrexia [Recovering/Resolving]
  - Asthenia [Unknown]

NARRATIVE: CASE EVENT DATE: 20210519
